FAERS Safety Report 8914085 (Version 2)
Quarter: 2013Q1

REPORT INFORMATION
  Report Type: Report from Study
  Country: JP (occurrence: JP)
  Receive Date: 20121119
  Receipt Date: 20130102
  Transmission Date: 20140127
  Serious: Yes (Other)
  Sender: FDA-Public Use
  Company Number: JP-VERTEX PHARMACEUTICAL INC.-AE-2012-005830

PATIENT
  Age: 51 Year
  Sex: Male

DRUGS (13)
  1. VX-950 (TELAPREVIR) [Suspect]
     Indication: CHRONIC HEPATITIS C
     Dosage: 2250 MG, QD
     Route: 048
     Dates: start: 20120302, end: 20120524
  2. REBETOL [Suspect]
     Indication: CHRONIC HEPATITIS C
     Dosage: 600 MG, QD
     Route: 048
     Dates: start: 20120302, end: 20120816
  3. PEGINTRON                          /01543001/ [Suspect]
     Indication: CHRONIC HEPATITIS C
     Dosage: 1.3 ?G/KG, QW
     Route: 058
     Dates: start: 20120302, end: 20120302
  4. PEGINTRON                          /01543001/ [Suspect]
     Dosage: 0.7 ?G/KG, QW
     Route: 058
     Dates: start: 20120309, end: 20120309
  5. PEGINTRON                          /01543001/ [Suspect]
     Dosage: 1.1 ?G/KG, QW
     Route: 058
     Dates: start: 20120316, end: 20120323
  6. PEGINTRON                          /01543001/ [Suspect]
     Dosage: 0.7 ?G/KG, QW
     Route: 058
     Dates: start: 20120330, end: 20120330
  7. PEGINTRON                          /01543001/ [Suspect]
     Dosage: 0.9 ?G/KG, QW
     Route: 058
     Dates: start: 20120406, end: 20120810
  8. ZYLORIC [Suspect]
     Indication: HYPERURICAEMIA
     Dosage: 200 MG, QD
     Route: 048
     Dates: start: 20120303, end: 20120412
  9. URSO                               /00465701/ [Concomitant]
     Dosage: 900 MG, QD
     Route: 048
     Dates: end: 20120412
  10. PROMAC                             /00024401/ [Concomitant]
     Dosage: 2 DF, QD
     Route: 048
  11. OLMETEC [Concomitant]
     Dosage: 40 MG, QD
     Route: 048
  12. EBASTEL D [Concomitant]
     Dosage: 1 DF, QD
     Route: 048
     Dates: end: 20120405
  13. URSODEOXYCHOLIC ACID [Concomitant]
     Dosage: 900 MG, QD
     Route: 048
     Dates: start: 20120413

REACTIONS (1)
  - Neutrophil count decreased [Recovered/Resolved]
